FAERS Safety Report 9016169 (Version 1)
Quarter: 2013Q1

REPORT INFORMATION
  Report Type: Spontaneous
  Country: GB (occurrence: GB)
  Receive Date: 20130116
  Receipt Date: 20130116
  Transmission Date: 20140127
  Serious: Yes (Other)
  Sender: FDA-Public Use
  Company Number: GB-US-EMD SERONO, INC.-7187483

PATIENT
  Sex: Male

DRUGS (3)
  1. REBIF [Suspect]
     Indication: PRODUCT USED FOR UNKNOWN INDICATION
     Route: 058
     Dates: start: 200911, end: 201208
  2. REBIF [Suspect]
     Route: 058
     Dates: start: 201301, end: 201301
  3. REBIF [Suspect]
     Route: 058
     Dates: start: 201301

REACTIONS (3)
  - Myocardial infarction [Unknown]
  - Influenza like illness [Unknown]
  - Overdose [Unknown]
